APPROVED DRUG PRODUCT: PENICILLIN-VK
Active Ingredient: PENICILLIN V POTASSIUM
Strength: EQ 500MG BASE
Dosage Form/Route: TABLET;ORAL
Application: A060711 | Product #003 | TE Code: AB
Applicant: TEVA PHARMACEUTICALS USA INC
Approved: Approved Prior to Jan 1, 1982 | RLD: No | RS: No | Type: RX